FAERS Safety Report 24078445 (Version 1)
Quarter: 2024Q3

REPORT INFORMATION
  Report Type: Spontaneous
  Country: NL (occurrence: NL)
  Receive Date: 20240711
  Receipt Date: 20240711
  Transmission Date: 20241016
  Serious: Yes (Other)
  Sender: CHEPLAPHARM
  Company Number: NL-AstraZeneca-2018SF62910

PATIENT
  Age: 20 Year
  Sex: Male

DRUGS (12)
  1. QUETIAPINE [Suspect]
     Active Substance: QUETIAPINE
     Indication: Delusion
     Route: 048
  2. QUETIAPINE [Suspect]
     Active Substance: QUETIAPINE
     Indication: Schizophrenia
     Route: 048
  3. OLANZAPINE [Suspect]
     Active Substance: OLANZAPINE
     Indication: Delusion
  4. OLANZAPINE [Suspect]
     Active Substance: OLANZAPINE
     Indication: Schizophrenia
  5. LEVOMEPROMAZINE [Suspect]
     Active Substance: LEVOMEPROMAZINE
     Indication: Delusion
  6. LEVOMEPROMAZINE [Suspect]
     Active Substance: LEVOMEPROMAZINE
     Indication: Schizophrenia
  7. PENFLURIDOL [Suspect]
     Active Substance: PENFLURIDOL
     Indication: Schizophrenia
  8. PENFLURIDOL [Suspect]
     Active Substance: PENFLURIDOL
     Indication: Delusion
  9. PIMOZIDE [Suspect]
     Active Substance: PIMOZIDE
     Indication: Schizophrenia
  10. PIMOZIDE [Suspect]
     Active Substance: PIMOZIDE
     Indication: Delusion
  11. RISPERIDONE [Suspect]
     Active Substance: RISPERIDONE
     Indication: Schizophrenia
  12. RISPERIDONE [Suspect]
     Active Substance: RISPERIDONE
     Indication: Delusion

REACTIONS (5)
  - Oculogyric crisis [Unknown]
  - Seizure [Unknown]
  - Cogwheel rigidity [Unknown]
  - Akathisia [Unknown]
  - Drug ineffective [Unknown]
